FAERS Safety Report 19110507 (Version 1)
Quarter: 2021Q2

REPORT INFORMATION
  Report Type: Spontaneous
  Country: US (occurrence: US)
  Receive Date: 20210409
  Receipt Date: 20210409
  Transmission Date: 20210717
  Serious: Yes (Hospitalization)
  Sender: FDA-Public Use
  Company Number: US-SA-2021SA117193

PATIENT
  Age: 23 Year
  Sex: Female
  Weight: 35.38 kg

DRUGS (1)
  1. DUPIXENT [Suspect]
     Active Substance: DUPILUMAB
     Indication: DERMATITIS ATOPIC
     Dosage: UNK
     Route: 058
     Dates: start: 20201215, end: 2021

REACTIONS (4)
  - Administration site acne [Unknown]
  - Injection site pain [Unknown]
  - Rib fracture [Unknown]
  - Cough [Unknown]

NARRATIVE: CASE EVENT DATE: 2021
